FAERS Safety Report 7423416-8 (Version None)
Quarter: 2011Q2

REPORT INFORMATION
  Report Type: 
  Country: None (occurrence: None)
  Receive Date: 20110419
  Receipt Date: 20110407
  Transmission Date: 20111010
  Serious: Yes (Hospitalization)
  Sender: FDA-Public Use
  Company Number: US-ACTELION-A-US2011-46712

PATIENT

DRUGS (1)
  1. TRACLEER [Suspect]
     Indication: PULMONARY ARTERIAL HYPERTENSION
     Dosage: UNK
     Route: 048
     Dates: start: 20090615, end: 20110301

REACTIONS (6)
  - CHOLECYSTITIS ACUTE [None]
  - ABDOMINAL PAIN [None]
  - PULMONARY OEDEMA [None]
  - OEDEMA [None]
  - VOMITING [None]
  - NAUSEA [None]
